FAERS Safety Report 13996602 (Version 1)
Quarter: 2017Q3

REPORT INFORMATION
  Report Type: Spontaneous
  Country: TW (occurrence: TW)
  Receive Date: 20170921
  Receipt Date: 20170921
  Transmission Date: 20171128
  Serious: Yes (Hospitalization, Other)
  Sender: FDA-Public Use
  Company Number: TW-PFIZER INC-2017404254

PATIENT
  Age: 75 Year
  Sex: Male

DRUGS (2)
  1. NORVASC [Suspect]
     Active Substance: AMLODIPINE BESYLATE
     Indication: HYPERTENSION
     Dosage: 1 DF, 1X/DAY (IN THE MORNING)
     Route: 048
     Dates: start: 2013, end: 201708
  2. DOXABEN XL [Suspect]
     Active Substance: DOXAZOSIN MESYLATE
     Indication: BENIGN PROSTATIC HYPERPLASIA
     Dosage: 4 MG, 1X/DAY (1 DF PER DAY IN THE EVENING)
     Route: 048
     Dates: start: 2013, end: 201708

REACTIONS (3)
  - Gastric haemorrhage [Recovered/Resolved]
  - Product use issue [Unknown]
  - Micturition disorder [Recovered/Resolved]

NARRATIVE: CASE EVENT DATE: 201708
